FAERS Safety Report 8669924 (Version 2)
Quarter: 2012Q4

REPORT INFORMATION
  Report Type: 
  Country: US (occurrence: US)
  Receive Date: 20120718
  Receipt Date: 20120903
  Transmission Date: 20130627
  Serious: Yes (Hospitalization, Other)
  Sender: FDA-Public Use
  Company Number: US-BRISTOL-MYERS SQUIBB COMPANY-16750127

PATIENT
  Age: 74 Year
  Sex: Male
  Weight: 80 kg

DRUGS (10)
  1. YERVOY [Suspect]
     Indication: MALIGNANT MELANOMA
     Dosage: 06Jul12,27Jul12-3rd dose
     Route: 042
     Dates: start: 20120523
  2. LIPITOR [Concomitant]
     Route: 048
     Dates: start: 19980119
  3. PROTONIX [Concomitant]
     Dates: start: 20091223
  4. LEVOTHYROXINE [Concomitant]
     Dosage: Tab
     Route: 048
     Dates: start: 20120119
  5. METAMUCIL [Concomitant]
     Dates: start: 20120522
  6. LEXAPRO [Concomitant]
     Dosage: 1/2 tab daily
     Dates: start: 20120522
  7. CALCIUM + MAGNESIUM + ZINC [Concomitant]
     Dates: start: 20120522
  8. LORAZEPAM [Concomitant]
     Dates: start: 20120522
  9. LOPRESSOR [Concomitant]
     Dates: start: 20120628
  10. GLUCOTROL [Concomitant]
     Indication: BLOOD GLUCOSE ABNORMAL

REACTIONS (3)
  - Metastases to central nervous system [Unknown]
  - Colitis [Unknown]
  - Diverticulitis [Unknown]
